FAERS Safety Report 18888034 (Version 2)
Quarter: 2021Q1

REPORT INFORMATION
  Report Type: Report from Study
  Country: US (occurrence: US)
  Receive Date: 20210213
  Receipt Date: 20210322
  Transmission Date: 20210420
  Serious: No
  Sender: FDA-Public Use
  Company Number: NVSC2021US026429

PATIENT
  Age: 58 Year
  Sex: Male

DRUGS (2)
  1. ENTRESTO [Suspect]
     Active Substance: SACUBITRIL\VALSARTAN
     Dosage: UNK (DOSE DECREASED)
     Route: 048
  2. ENTRESTO [Suspect]
     Active Substance: SACUBITRIL\VALSARTAN
     Indication: CARDIAC FAILURE
     Dosage: UNK UNK, BID
     Route: 048
     Dates: start: 202011

REACTIONS (11)
  - Nervousness [Unknown]
  - Concomitant disease aggravated [Unknown]
  - Throat clearing [Unknown]
  - Pain in extremity [Unknown]
  - Fall [Unknown]
  - Cough [Unknown]
  - Fatigue [Unknown]
  - Ejection fraction decreased [Unknown]
  - Restless legs syndrome [Unknown]
  - Dizziness [Recovered/Resolved]
  - Skin abrasion [Unknown]

NARRATIVE: CASE EVENT DATE: 202011
